FAERS Safety Report 9563186 (Version 1)
Quarter: 2013Q3

REPORT INFORMATION
  Report Type: Spontaneous
  Country: US (occurrence: US)
  Receive Date: 20130927
  Receipt Date: 20130927
  Transmission Date: 20140515
  Serious: No
  Sender: FDA-Public Use
  Company Number: US-BRISTOL-MYERS SQUIBB COMPANY-18871731

PATIENT
  Age: 70 Year
  Sex: Female

DRUGS (5)
  1. ONGLYZA TABS [Suspect]
  2. INSULIN [Concomitant]
  3. FLUOXETINE [Concomitant]
  4. GLIPIZIDE [Concomitant]
  5. LOVASTATIN [Concomitant]

REACTIONS (1)
  - Blood glucose increased [Unknown]
